FAERS Safety Report 7833273-3 (Version None)
Quarter: 2011Q4

REPORT INFORMATION
  Report Type: 
  Country: None (occurrence: None)
  Receive Date: 20111024
  Receipt Date: 20111018
  Transmission Date: 20120403
  Serious: Yes (Death, Hospitalization, Other)
  Sender: FDA-Public Use
  Company Number: DE-PFIZER INC-2011132292

PATIENT
  Age: 72 Year
  Sex: Male
  Weight: 80 kg

DRUGS (4)
  1. TEMSIROLIMUS [Suspect]
     Indication: RENAL CANCER METASTATIC
     Dosage: 25 MG, UNK
     Route: 042
     Dates: start: 20101215, end: 20110608
  2. PAMIDRONATE DISODIUM [Concomitant]
     Dosage: 90 MG, WEEKLY
  3. FENISTIL [Concomitant]
     Dosage: 4 MG, WEEKLY
     Dates: start: 20101215
  4. LASIX [Concomitant]
     Dosage: 20 MG, 2X/DAY

REACTIONS (4)
  - RENAL CELL CARCINOMA [None]
  - DISEASE PROGRESSION [None]
  - ASCITES [None]
  - ABDOMINAL PAIN [None]
